FAERS Safety Report 20667207 (Version 1)
Quarter: 2022Q2

REPORT INFORMATION
  Report Type: Spontaneous
  Country: US (occurrence: US)
  Receive Date: 20220404
  Receipt Date: 20220404
  Transmission Date: 20220720
  Serious: No
  Sender: FDA-Public Use
  Company Number: US-BRISTOL-MYERS SQUIBB COMPANY-2022-013417

PATIENT
  Age: 68 Year
  Sex: Female

DRUGS (1)
  1. REVLIMID [Suspect]
     Active Substance: LENALIDOMIDE
     Indication: Plasma cell myeloma
     Dosage: 25 MG 1 CAPSULE BY MOUTH DAILY ON DAYS 1-14 OF EACH 21 DAY CYCLE.
     Route: 065
     Dates: start: 20220114

REACTIONS (2)
  - Hypoaesthesia [Unknown]
  - Intentional product use issue [Unknown]
